FAERS Safety Report 5646704-4 (Version None)
Quarter: 2008Q1

REPORT INFORMATION
  Report Type: 
  Country: None (occurrence: None)
  Receive Date: 20080303
  Receipt Date: 20080220
  Transmission Date: 20080703
  Serious: Yes (Hospitalization)
  Sender: FDA-Public Use
  Company Number: ES-AMGEN-US266817

PATIENT
  Age: 43 Year

DRUGS (2)
  1. ENBREL [Suspect]
     Indication: PSORIASIS
     Route: 065
     Dates: end: 20080113
  2. ENBREL [Suspect]
     Dosage: 50 MG LYOPHILIZED TWICE PER WEEK
     Route: 065

REACTIONS (3)
  - CONDITION AGGRAVATED [None]
  - PSORIASIS [None]
  - THERAPEUTIC RESPONSE DECREASED [None]
